FAERS Safety Report 8183754-0 (Version None)
Quarter: 2012Q1

REPORT INFORMATION
  Report Type: 
  Country: None (occurrence: None)
  Receive Date: 20120305
  Receipt Date: 20120229
  Transmission Date: 20120608
  Serious: Yes (Hospitalization)
  Sender: FDA-Public Use
  Company Number: PHEH2012US002649

PATIENT
  Sex: Female
  Weight: 59 kg

DRUGS (4)
  1. OXYCONTIN [Concomitant]
     Dosage: 60 MG,FOR 12 HOURS
     Route: 048
  2. VICODIN ES [Concomitant]
     Dosage: 1 DF
     Route: 048
  3. EXJADE [Suspect]
     Indication: SICKLE CELL ANAEMIA
     Dosage: 1000 MG, QD
     Route: 048
  4. HYDROXYUREA [Concomitant]
     Dosage: 2 DF, QD
     Route: 048

REACTIONS (2)
  - MALAISE [None]
  - PAIN [None]
